FAERS Safety Report 10200384 (Version 1)
Quarter: 2014Q2

REPORT INFORMATION
  Report Type: Spontaneous
  Country: US (occurrence: US)
  Receive Date: 20140528
  Receipt Date: 20140528
  Transmission Date: 20141212
  Serious: Yes (Other)
  Sender: FDA-Public Use
  Company Number: US-ABBVIE-14P-163-1239984-00

PATIENT
  Age: 59 Year
  Sex: Male
  Weight: 72.64 kg

DRUGS (4)
  1. ANDROGEL [Suspect]
     Indication: BLOOD TESTOSTERONE DECREASED
     Route: 061
     Dates: start: 201310
  2. ANDROGEL [Suspect]
     Route: 061
     Dates: start: 20131101, end: 201401
  3. ANDROGEL [Suspect]
     Indication: PRODUCT USED FOR UNKNOWN INDICATION
     Route: 061
     Dates: start: 201401
  4. LISINOPRIL [Concomitant]
     Indication: HYPERTENSION

REACTIONS (2)
  - Nephrolithiasis [Recovered/Resolved]
  - Arthralgia [Not Recovered/Not Resolved]
